FAERS Safety Report 9518930 (Version 1)
Quarter: 2013Q3

REPORT INFORMATION
  Report Type: Spontaneous
  Country: US (occurrence: US)
  Receive Date: 20130912
  Receipt Date: 20130912
  Transmission Date: 20140515
  Serious: No
  Sender: FDA-Public Use
  Company Number: US-PFIZER INC-2013259704

PATIENT
  Age: 77 Year
  Sex: Female

DRUGS (2)
  1. SUTENT [Suspect]
     Indication: RENAL CANCER
     Dosage: 50 MG, UNK
     Dates: start: 20130805, end: 2013
  2. SUTENT [Suspect]
     Dosage: 12.5 MG, 3X/DAY, 14 DAYS ON 7 OFF
     Dates: start: 2013

REACTIONS (1)
  - Blood potassium decreased [Unknown]
